FAERS Safety Report 8435892-2 (Version None)
Quarter: 2012Q2

REPORT INFORMATION
  Report Type: 
  Country: None (occurrence: None)
  Receive Date: 20120614
  Receipt Date: 20120531
  Transmission Date: 20120825
  Serious: Yes (Life-Threatening)
  Sender: FDA-Public Use
  Company Number: JP-ROCHE-1063747

PATIENT
  Sex: Male
  Weight: 67 kg

DRUGS (8)
  1. EMEND [Concomitant]
     Route: 048
     Dates: start: 20120214, end: 20120418
  2. AVASTIN [Suspect]
     Indication: LUNG ADENOCARCINOMA METASTATIC
     Route: 041
     Dates: start: 20120213, end: 20120416
  3. EMEND [Concomitant]
     Indication: PROPHYLAXIS
     Route: 048
     Dates: start: 20120213, end: 20120416
  4. CISPLATIN [Concomitant]
     Indication: LUNG ADENOCARCINOMA METASTATIC
     Route: 041
     Dates: start: 20120213, end: 20120416
  5. TS-1 [Concomitant]
     Indication: LUNG ADENOCARCINOMA METASTATIC
     Dosage: 14 TIMES/3 WEEKS
     Route: 048
     Dates: start: 20120213, end: 20120416
  6. LANSOPRAZOLE [Concomitant]
     Indication: PROPHYLAXIS
     Route: 048
     Dates: start: 20111214, end: 20120423
  7. TRAMADOL HYDROCHLORIDE [Concomitant]
     Indication: CANCER PAIN
     Route: 048
     Dates: start: 20120210, end: 20120331
  8. VOLTAREN-XR [Concomitant]
     Indication: CANCER PAIN
     Route: 048
     Dates: start: 20111214, end: 20120423

REACTIONS (6)
  - CONSTIPATION [None]
  - INFECTIOUS PERITONITIS [None]
  - GASTROINTESTINAL PERFORATION [None]
  - DISSEMINATED INTRAVASCULAR COAGULATION [None]
  - ILEUS [None]
  - SEPSIS [None]
